FAERS Safety Report 21585869 (Version 1)
Quarter: 2022Q4

REPORT INFORMATION
  Report Type: Spontaneous
  Country: IN (occurrence: IN)
  Receive Date: 20221111
  Receipt Date: 20221111
  Transmission Date: 20230113
  Serious: Yes (Other)
  Sender: FDA-Public Use
  Company Number: IN-PFIZER INC-PV202200098897

PATIENT
  Sex: Female

DRUGS (4)
  1. AVIBACTAM SODIUM\CEFTAZIDIME [Suspect]
     Active Substance: AVIBACTAM SODIUM\CEFTAZIDIME
     Indication: Product used for unknown indication
     Dosage: 2.5 G, TID
     Route: 042
     Dates: start: 20221102
  2. AZTREONAM [Concomitant]
     Active Substance: AZTREONAM
     Dosage: UNK
  3. MINOCYCLINE [Concomitant]
     Active Substance: MINOCYCLINE HYDROCHLORIDE
     Dosage: UNK
  4. COLISTIN [Concomitant]
     Active Substance: COLISTIN
     Dosage: UNK (NEBU)

REACTIONS (2)
  - Metabolic encephalopathy [Unknown]
  - Off label use [Unknown]

NARRATIVE: CASE EVENT DATE: 20221102
